FAERS Safety Report 25921295 (Version 1)
Quarter: 2025Q4

REPORT INFORMATION
  Report Type: Spontaneous
  Country: US (occurrence: US)
  Receive Date: 20251014
  Receipt Date: 20251014
  Transmission Date: 20260118
  Serious: No
  Sender: SANOFI AVENTIS
  Company Number: US-SA-2025SA304578

PATIENT

DRUGS (1)
  1. WAYRILZ [Suspect]
     Active Substance: RILZABRUTINIB
     Dosage: UNK

REACTIONS (3)
  - Insomnia [Unknown]
  - Asthenia [Unknown]
  - Nausea [Unknown]
